FAERS Safety Report 24061892 (Version 3)
Quarter: 2025Q1

REPORT INFORMATION
  Report Type: Spontaneous
  Country: US (occurrence: US)
  Receive Date: 20240708
  Receipt Date: 20250130
  Transmission Date: 20250409
  Serious: No
  Sender: PFIZER
  Company Number: US-PFIZER INC-202400204827

PATIENT
  Age: 60 Year
  Sex: Female

DRUGS (1)
  1. XELJANZ XR [Suspect]
     Active Substance: TOFACITINIB CITRATE

REACTIONS (5)
  - Condition aggravated [Unknown]
  - Fall [Unknown]
  - Nerve compression [Unknown]
  - Limb injury [Unknown]
  - Gait inability [Unknown]

NARRATIVE: CASE EVENT DATE: 20240101
